FAERS Safety Report 4880378-5 (Version None)
Quarter: 2005Q4

REPORT INFORMATION
  Report Type: 
  Country: None (occurrence: None)
  Receive Date: 20051223
  Receipt Date: 20051011
  Transmission Date: 20060501
  Serious: No
  Sender: FDA-Public Use
  Company Number: 05P-163-0313363-00

PATIENT
  Age: 69 Year
  Sex: Female
  Weight: 53.5244 kg

DRUGS (2)
  1. HUMIRA [Suspect]
     Indication: RHEUMATOID ARTHRITIS
     Dosage: 40 MG, 1 IN 2 WK, SUBCUTANEOUS
     Route: 058
     Dates: end: 20051011
  2. CELECOXIB [Concomitant]

REACTIONS (7)
  - ALOPECIA [None]
  - ARTHROPOD BITE [None]
  - ERYTHEMA [None]
  - HYPOTRICHOSIS [None]
  - INDURATION [None]
  - LOCALISED INFECTION [None]
  - OEDEMA PERIPHERAL [None]
